FAERS Safety Report 10216615 (Version 2)
Quarter: 2014Q2

REPORT INFORMATION
  Report Type: Spontaneous
  Country: US (occurrence: US)
  Receive Date: 20140604
  Receipt Date: 20140630
  Transmission Date: 20141212
  Serious: No
  Sender: FDA-Public Use
  Company Number: US-PFIZER INC-2014153193

PATIENT
  Age: 61 Year
  Sex: Female
  Weight: 74.83 kg

DRUGS (3)
  1. LYRICA [Suspect]
     Indication: FIBROMYALGIA
     Dosage: 200 MG, 2X/DAY
     Dates: start: 2005, end: 201405
  2. LYRICA [Suspect]
     Indication: DIABETIC NEUROPATHY
  3. LISINOPRIL [Concomitant]
     Indication: HYPERTENSION
     Dosage: 12.5 MG, DAILY

REACTIONS (1)
  - Feeling abnormal [Unknown]
